FAERS Safety Report 8110041-9 (Version None)
Quarter: 2012Q1

REPORT INFORMATION
  Report Type: 
  Country: None (occurrence: None)
  Receive Date: 20120202
  Receipt Date: 20120123
  Transmission Date: 20120608
  Serious: No
  Sender: FDA-Public Use
  Company Number: US-AMGEN-USASP2011068301

PATIENT
  Age: 71 Year
  Sex: Male

DRUGS (1)
  1. ENBREL [Suspect]
     Indication: PSORIASIS
     Dosage: 50 MG, 2 TIMES/WK
     Dates: start: 20050518, end: 20111201

REACTIONS (7)
  - ASTHENIA [None]
  - PRODUCTIVE COUGH [None]
  - PSORIASIS [None]
  - OROPHARYNGEAL PAIN [None]
  - ABDOMINAL PAIN UPPER [None]
  - BRONCHITIS [None]
  - COUGH [None]
